FAERS Safety Report 4748518-6 (Version None)
Quarter: 2005Q3

REPORT INFORMATION
  Report Type: 
  Country: None (occurrence: None)
  Receive Date: 20050818
  Receipt Date: 20050818
  Transmission Date: 20060218
  Serious: Yes (Death)
  Sender: FDA-Public Use
  Company Number: None

PATIENT
  Age: 9 Year
  Sex: Male
  Weight: 31.7518 kg

DRUGS (1)
  1. CEPHALEXIN [Suspect]
     Indication: CELLULITIS
     Dosage: 2TABS  QID  ORAL
     Route: 048
     Dates: start: 20000308, end: 20000310

REACTIONS (9)
  - BUNDLE BRANCH BLOCK [None]
  - CARDIAC ARREST [None]
  - CARDIAC FAILURE [None]
  - DISORIENTATION [None]
  - DRUG HYPERSENSITIVITY [None]
  - HYPOTENSION [None]
  - MYOCARDITIS [None]
  - RENAL FAILURE [None]
  - TACHYCARDIA [None]
